FAERS Safety Report 17188000 (Version 1)
Quarter: 2019Q4

REPORT INFORMATION
  Report Type: Spontaneous
  Country: GB (occurrence: GB)
  Receive Date: 20191221
  Receipt Date: 20191221
  Transmission Date: 20200122
  Serious: Yes (Life-Threatening, Other)
  Sender: FDA-Public Use
  Company Number: GB-ACCORD-166002

PATIENT
  Age: 79 Year
  Sex: Female
  Weight: 46 kg

DRUGS (7)
  1. FEXOFENADINE [Concomitant]
     Active Substance: FEXOFENADINE HYDROCHLORIDE
     Dates: start: 20190910
  2. BIMATOPROST. [Concomitant]
     Active Substance: BIMATOPROST
     Dates: start: 20191107
  3. CETRABEN [Concomitant]
     Active Substance: PARAFFIN
     Dosage: APPLY AS DIRECTED, EMOLLIENT CREAM
     Dates: start: 20190905
  4. AMOXICILLIN. [Concomitant]
     Active Substance: AMOXICILLIN
     Dates: start: 20191004
  5. AMLODIPINE [Suspect]
     Active Substance: AMLODIPINE BESYLATE
     Indication: PRODUCT USED FOR UNKNOWN INDICATION
  6. DERMOL [Concomitant]
     Active Substance: BENZALKONIUM CHLORIDE\CHLORHEXIDINE HYDROCHLORIDE\ISOPROPYL MYRISTATE\PARAFFIN
     Dosage: USE AS DIRECTED
     Dates: start: 20190910
  7. SILDENAFIL. [Concomitant]
     Active Substance: SILDENAFIL
     Dosage: TO MAINTENACE DOSE 20MG THREE TIMES/DAY
     Dates: start: 20191001

REACTIONS (2)
  - Blister [Unknown]
  - Rash [Recovered/Resolved]
